FAERS Safety Report 9949542 (Version 1)
Quarter: 2014Q1

REPORT INFORMATION
  Report Type: Not Available
  Country: GB (occurrence: GB)
  Receive Date: 20140304
  Receipt Date: 20140304
  Transmission Date: 20141002
  Serious: Yes (Hospitalization)
  Sender: FDA-Public Use
  Company Number: GB-ASTELLAS-2014EU001531

PATIENT
  Age: 64 Year
  Sex: Male
  Weight: 84 kg

DRUGS (2)
  1. YM178 [Suspect]
     Indication: MICTURITION URGENCY
     Dosage: 25 MG, UNKNOWN/D
     Route: 048
     Dates: start: 20130718, end: 20130801
  2. DIGOXIN [Interacting]
     Dosage: UNK
     Route: 065

REACTIONS (6)
  - Inhibitory drug interaction [Recovered/Resolved]
  - Confusional state [Unknown]
  - Diarrhoea [Unknown]
  - Toxicity to various agents [Unknown]
  - Nausea [Unknown]
  - Palpitations [Unknown]
